FAERS Safety Report 10081667 (Version 1)
Quarter: 2014Q2

REPORT INFORMATION
  Report Type: Spontaneous
  Country: GB (occurrence: GB)
  Receive Date: 20140416
  Receipt Date: 20140416
  Transmission Date: 20141212
  Serious: Yes (Hospitalization, Other)
  Sender: FDA-Public Use
  Company Number: GB-WATSON-2014-07228

PATIENT
  Age: 65 Year
  Sex: Female

DRUGS (9)
  1. VALPROIC ACID (UNKNOWN) [Suspect]
     Indication: CONVULSION
     Dosage: UNK
     Route: 065
  2. LACTULOSE [Concomitant]
     Indication: PRODUCT USED FOR UNKNOWN INDICATION
     Dosage: UNK
     Route: 065
  3. SOLIFENACIN [Concomitant]
     Indication: PRODUCT USED FOR UNKNOWN INDICATION
     Dosage: UNK
     Route: 065
  4. OMEPRAZOLE [Concomitant]
     Indication: PRODUCT USED FOR UNKNOWN INDICATION
     Dosage: UNK
     Route: 065
  5. RAMIPRIL [Concomitant]
     Indication: PRODUCT USED FOR UNKNOWN INDICATION
     Dosage: UNK
     Route: 065
  6. SENNA                              /00142201/ [Concomitant]
     Indication: PRODUCT USED FOR UNKNOWN INDICATION
     Dosage: UNK
     Route: 065
  7. CETIRIZINE [Concomitant]
     Indication: PRODUCT USED FOR UNKNOWN INDICATION
     Dosage: UNK
     Route: 065
  8. PARACETAMOL [Concomitant]
     Indication: PRODUCT USED FOR UNKNOWN INDICATION
     Dosage: UNK
     Route: 065
  9. TRIMETHOPRIM [Concomitant]
     Indication: URINARY TRACT INFECTION
     Dosage: UNK
     Route: 065

REACTIONS (1)
  - Hyperammonaemic encephalopathy [Recovering/Resolving]
